FAERS Safety Report 4511873-6 (Version None)
Quarter: 2004Q4

REPORT INFORMATION
  Report Type: 
  Country: None (occurrence: None)
  Receive Date: 20041123
  Receipt Date: 20041110
  Transmission Date: 20050328
  Serious: Yes (Other)
  Sender: FDA-Public Use
  Company Number: 2004-BP-10657BP

PATIENT
  Age: 62 Year
  Sex: Female
  Weight: 73.5 kg

DRUGS (3)
  1. MIRAPEX [Suspect]
     Indication: PARKINSON'S DISEASE
     Dosage: 1.5 MG (NR, 0.5 MG TID), PO
     Route: 048
     Dates: end: 20041013
  2. SINEMENT (SINEMENT) [Concomitant]
  3. COMTAN [Concomitant]

REACTIONS (2)
  - DYSTONIA [None]
  - GAMBLING [None]
